FAERS Safety Report 15945532 (Version 1)
Quarter: 2019Q1

REPORT INFORMATION
  Report Type: Spontaneous
  Country: US (occurrence: US)
  Receive Date: 20190211
  Receipt Date: 20190211
  Transmission Date: 20190417
  Serious: Yes (Other)
  Sender: FDA-Public Use
  Company Number: US-SA-2019SA032911

PATIENT
  Age: 58 Year
  Sex: Female

DRUGS (1)
  1. ALIROCUMAB [Suspect]
     Active Substance: ALIROCUMAB
     Indication: TYPE IIA HYPERLIPIDAEMIA
     Dosage: UNK UNK, UNK
     Dates: start: 201206

REACTIONS (2)
  - Gastrointestinal disorder [Unknown]
  - Lymphoma [Unknown]

NARRATIVE: CASE EVENT DATE: 201705
